FAERS Safety Report 5601208-X (Version None)
Quarter: 2008Q1

REPORT INFORMATION
  Report Type: 
  Country: None (occurrence: None)
  Receive Date: 20080118
  Receipt Date: 20080110
  Transmission Date: 20080703
  Serious: Yes (Other)
  Sender: FDA-Public Use
  Company Number: 2008-00113

PATIENT
  Sex: Male

DRUGS (3)
  1. VELCADE [Suspect]
     Indication: MULTIPLE MYELOMA
     Dosage: 1.60 MG/M2, INTRAVENOUS
     Route: 042
     Dates: end: 20080108
  2. PREDNISONE TAB [Concomitant]
  3. DURAGESIC-100 [Concomitant]

REACTIONS (2)
  - NEUROPATHY PERIPHERAL [None]
  - SPEECH DISORDER [None]
